FAERS Safety Report 12467972 (Version 1)
Quarter: 2016Q2

REPORT INFORMATION
  Report Type: Spontaneous
  Country: GB (occurrence: GB)
  Receive Date: 20160615
  Receipt Date: 20160615
  Transmission Date: 20160815
  Serious: Yes (Other)
  Sender: FDA-Public Use
  Company Number: GB-PFIZER INC-2016293088

PATIENT
  Age: 58 Year
  Sex: Female
  Weight: 60 kg

DRUGS (3)
  1. AMITRIPTYLINE [Concomitant]
     Active Substance: AMITRIPTYLINE
     Dosage: 10 MG, UNK
  2. THYROXINE [Concomitant]
     Active Substance: LEVOTHYROXINE
     Dosage: 100 MG, UNK
  3. LIPITOR [Suspect]
     Active Substance: ATORVASTATIN CALCIUM
     Indication: BLOOD CHOLESTEROL INCREASED
     Dosage: 20 MG, UNK
     Route: 048
     Dates: start: 20160511, end: 20160516

REACTIONS (7)
  - Myalgia [Recovering/Resolving]
  - Muscle twitching [Not Recovered/Not Resolved]
  - Neuralgia [Recovering/Resolving]
  - Oral discomfort [Not Recovered/Not Resolved]
  - Malaise [Recovering/Resolving]
  - Extraocular muscle paresis [Not Recovered/Not Resolved]
  - Depressed mood [Recovered/Resolved]
